FAERS Safety Report 23424306 (Version 1)
Quarter: 2024Q1

REPORT INFORMATION
  Report Type: Spontaneous
  Country: US (occurrence: US)
  Receive Date: 20240120
  Receipt Date: 20240120
  Transmission Date: 20240410
  Serious: No
  Sender: FDA-Public Use
  Company Number: US-AUROBINDO-AUR-APL-2023-078627

PATIENT
  Sex: Male
  Weight: 21 kg

DRUGS (4)
  1. CEFDINIR [Suspect]
     Active Substance: CEFDINIR
     Indication: Cough
     Dosage: AROUND 6 ML ONCE DAILY
     Route: 065
     Dates: start: 20231130
  2. CEFDINIR [Suspect]
     Active Substance: CEFDINIR
     Indication: Ear infection
  3. PREDNISONE [Concomitant]
     Active Substance: PREDNISONE
     Indication: Product used for unknown indication
     Dosage: UNK
     Route: 048
  4. ALBUTEROL [Concomitant]
     Active Substance: ALBUTEROL
     Indication: Product used for unknown indication
     Dosage: UNK

REACTIONS (4)
  - Cough [Unknown]
  - Product storage error [Unknown]
  - Product administration error [Unknown]
  - Extra dose administered [Unknown]
